FAERS Safety Report 7908715-5 (Version None)
Quarter: 2011Q4

REPORT INFORMATION
  Report Type: 
  Country: None (occurrence: None)
  Receive Date: 20111111
  Receipt Date: 20111027
  Transmission Date: 20120403
  Serious: Yes (Other)
  Sender: FDA-Public Use
  Company Number: PHHY2011JP96475

PATIENT
  Age: 67 Year
  Sex: Male

DRUGS (2)
  1. SANDOSTATIN LAR [Suspect]
     Indication: GASTRINOMA
     Route: 030
  2. TS 1 [Suspect]
     Indication: GASTRINOMA
     Dosage: 120 MG, UNK
     Route: 048

REACTIONS (10)
  - PALMAR-PLANTAR ERYTHRODYSAESTHESIA SYNDROME [None]
  - MALAISE [None]
  - VOMITING [None]
  - ANAEMIA [None]
  - NEUTROPHIL COUNT DECREASED [None]
  - DRY EYE [None]
  - PIGMENTATION DISORDER [None]
  - EPISTAXIS [None]
  - WHITE BLOOD CELL COUNT DECREASED [None]
  - DECREASED APPETITE [None]
